FAERS Safety Report 10688729 (Version 1)
Quarter: 2015Q1

REPORT INFORMATION
  Report Type: Report from Study
  Country: US (occurrence: US)
  Receive Date: 20150102
  Receipt Date: 20150102
  Transmission Date: 20150720
  Serious: Yes (Disabling, Other)
  Sender: FDA-Public Use
  Company Number: US-009507513-1412USA013959

PATIENT
  Age: 56 Year
  Sex: Male
  Weight: 83.45 kg

DRUGS (4)
  1. ZOCOR [Suspect]
     Active Substance: SIMVASTATIN
     Dosage: DOSE WAS INCREASED
     Route: 048
     Dates: start: 2010, end: 20100620
  2. PLAVIX [Concomitant]
     Active Substance: CLOPIDOGREL BISULFATE
     Dosage: FOR 2 YEARS
  3. ASPIRIN. [Concomitant]
     Active Substance: ASPIRIN
     Dosage: } 201 MG
  4. ZOCOR [Suspect]
     Active Substance: SIMVASTATIN
     Dosage: UNK
     Route: 048
     Dates: start: 20080807, end: 2010

REACTIONS (14)
  - Extraocular muscle disorder [Not Recovered/Not Resolved]
  - Lacrimation increased [Not Recovered/Not Resolved]
  - Toxicity to various agents [Unknown]
  - Fatigue [Not Recovered/Not Resolved]
  - Myopathy [Not Recovered/Not Resolved]
  - Myocardial infarction [Unknown]
  - Eye irritation [Not Recovered/Not Resolved]
  - Vision blurred [Not Recovered/Not Resolved]
  - Feeling cold [Not Recovered/Not Resolved]
  - Drug withdrawal syndrome [Unknown]
  - Muscle disorder [Unknown]
  - Hypersomnia [Unknown]
  - Exercise tolerance decreased [Unknown]
  - Mental disorder [Unknown]

NARRATIVE: CASE EVENT DATE: 20100622
